FAERS Safety Report 8308624 (Version 2)
Quarter: 2012Q4

REPORT INFORMATION
  Report Type: 
  Country: NO (occurrence: NO)
  Receive Date: 20111222
  Receipt Date: 20120921
  Transmission Date: 20130627
  Serious: Yes (Hospitalization, Other)
  Sender: FDA-Public Use
  Company Number: NO-SANOFI-AVENTIS-2011SA081750

PATIENT
  Age: 58 Year
  Sex: Male

DRUGS (2)
  1. AMARYL [Suspect]
     Indication: TYPE II DIABETES MELLITUS
     Route: 048
     Dates: start: 200509, end: 201002
  2. METFORMIN [Concomitant]
     Indication: TYPE 2 DIABETES MELLITUS

REACTIONS (6)
  - Hepatic cirrhosis [Recovered/Resolved]
  - Liver function test abnormal [Recovered/Resolved]
  - Malnutrition [Recovered/Resolved]
  - Photosensitivity reaction [Recovered/Resolved]
  - Pigmentation disorder [Recovered/Resolved]
  - Diarrhoea [Recovered/Resolved]
